FAERS Safety Report 13803501 (Version 2)
Quarter: 2017Q3

REPORT INFORMATION
  Report Type: Spontaneous
  Country: JP (occurrence: JP)
  Receive Date: 20170728
  Receipt Date: 20170828
  Transmission Date: 20171127
  Serious: Yes (Death)
  Sender: FDA-Public Use
  Company Number: JP-JNJFOC-20170722436

PATIENT
  Age: 9 Decade
  Sex: Male

DRUGS (1)
  1. DUROTEP MT [Suspect]
     Active Substance: FENTANYL
     Indication: DYSPNOEA
     Route: 062
     Dates: start: 20170719

REACTIONS (3)
  - Product use in unapproved indication [Unknown]
  - Marasmus [Fatal]
  - Off label use [Unknown]

NARRATIVE: CASE EVENT DATE: 20170719
